FAERS Safety Report 5944931-X (Version None)
Quarter: 2008Q4

REPORT INFORMATION
  Report Type: 
  Country: None (occurrence: None)
  Receive Date: 20081107
  Receipt Date: 20081030
  Transmission Date: 20090506
  Serious: Yes (Other)
  Sender: FDA-Public Use
  Company Number: NL-BAYER-200715552GDS

PATIENT
  Age: 72 Year
  Sex: Male

DRUGS (10)
  1. NEXAVAR [Suspect]
     Indication: RENAL CELL CARCINOMA
     Route: 048
     Dates: start: 20070902, end: 20071001
  2. NEXAVAR [Suspect]
     Dosage: TOTAL DAILY DOSE: 400 MG
     Route: 048
     Dates: start: 20071001, end: 20081014
  3. DICLOFENAC [Concomitant]
     Indication: PAIN
     Route: 048
  4. MORPHINE [Concomitant]
     Indication: PAIN
     Route: 062
  5. MORPHINE [Concomitant]
     Route: 062
  6. ANTIBIOTICS [Concomitant]
     Indication: DRUG USE FOR UNKNOWN INDICATION
     Route: 065
  7. OXYNORM [Concomitant]
     Indication: PAIN
     Route: 048
  8. ENALAPRIL MALEATE [Concomitant]
     Indication: HYPERTENSION
     Dosage: TOTAL DAILY DOSE: 20 MG
     Route: 048
  9. METOCLOPRAMIDE [Concomitant]
     Indication: NAUSEA
     Route: 065
  10. OMEPRAZOLE [Concomitant]
     Indication: PROPHYLAXIS
     Dosage: TOTAL DAILY DOSE: 40 MG
     Route: 065

REACTIONS (10)
  - ALOPECIA [None]
  - DIARRHOEA [None]
  - DRY SKIN [None]
  - DYSPHAGIA [None]
  - FATIGUE [None]
  - HYPERTENSION [None]
  - NAUSEA [None]
  - OROPHARYNGEAL PAIN [None]
  - PERIPHERAL COLDNESS [None]
  - PULMONARY OEDEMA [None]
